FAERS Safety Report 11639008 (Version 2)
Quarter: 2016Q2

REPORT INFORMATION
  Report Type: Spontaneous
  Country: NZ (occurrence: NZ)
  Receive Date: 20151018
  Receipt Date: 20160608
  Transmission Date: 20160815
  Serious: Yes (Hospitalization)
  Sender: FDA-Public Use
  Company Number: NZ-ELI_LILLY_AND_COMPANY-NZ201510005084

PATIENT
  Age: 62 Year
  Sex: Female

DRUGS (4)
  1. CLOBAZAM [Concomitant]
     Active Substance: CLOBAZAM
     Indication: EPILEPSY
     Dosage: 20 MG, BID
     Route: 065
  2. LEVETIRACETAM. [Concomitant]
     Active Substance: LEVETIRACETAM
     Indication: EPILEPSY
     Dosage: 1 G, BID
     Route: 065
  3. FLUOXETINE HYDROCHLORIDE. [Suspect]
     Active Substance: FLUOXETINE HYDROCHLORIDE
     Indication: DEPRESSED MOOD
     Dosage: 20 MG, QD
     Route: 065
  4. PHENYTOIN. [Interacting]
     Active Substance: PHENYTOIN
     Indication: EPILEPSY
     Dosage: 300 MG, QD
     Route: 065

REACTIONS (3)
  - Depressed level of consciousness [Recovered/Resolved]
  - Drug interaction [Recovered/Resolved]
  - Toxicity to various agents [Recovered/Resolved]

NARRATIVE: CASE EVENT DATE: 20150330
